FAERS Safety Report 4654962-8 (Version None)
Quarter: 2005Q2

REPORT INFORMATION
  Report Type: 
  Country: None (occurrence: None)
  Receive Date: 20050504
  Receipt Date: 20050421
  Transmission Date: 20051028
  Serious: Yes (Hospitalization, Other)
  Sender: FDA-Public Use
  Company Number: KII-2005-0016357

PATIENT
  Age: 36 Year
  Sex: Male

DRUGS (6)
  1. MORPHINE SULFATE [Suspect]
     Dosage: ORAL
     Route: 048
  2. TRAZODONE HCL [Suspect]
     Dosage: ORAL
     Route: 048
  3. THIAZIDES [Suspect]
     Dosage: ORAL
     Route: 048
  4. NIACIN [Suspect]
     Dosage: ORAL
     Route: 048
  5. BETA BLOCKING AGENTS [Suspect]
     Dosage: ORAL
     Route: 048
  6. PROTON PUMP (INHIBITOR) [Suspect]
     Dosage: ORAL
     Route: 048

REACTIONS (8)
  - HEART RATE INCREASED [None]
  - INTENTIONAL MISUSE [None]
  - MULTIPLE DRUG OVERDOSE [None]
  - OXYGEN SATURATION DECREASED [None]
  - POOR QUALITY DRUG ADMINISTERED [None]
  - SOMNOLENCE [None]
  - TEARFULNESS [None]
  - TOXICOLOGIC TEST ABNORMAL [None]
